FAERS Safety Report 12718067 (Version 1)
Quarter: 2016Q3

REPORT INFORMATION
  Report Type: Report from Study
  Country: GB (occurrence: GB)
  Receive Date: 20160906
  Receipt Date: 20160906
  Transmission Date: 20161109
  Serious: Yes (Death, Hospitalization)
  Sender: FDA-Public Use
  Company Number: GB-AMAG PHARMACEUTICALS, INC.-AMAG201601666

PATIENT
  Sex: Male

DRUGS (2)
  1. RIENSO [Suspect]
     Active Substance: FERUMOXYTOL
     Dosage: 10 ML, UNK
     Dates: start: 20140731, end: 20140731
  2. BUSCOPAN [Concomitant]
     Active Substance: BUTYLSCOPOLAMINE BROMIDE
     Indication: PRODUCT USED FOR UNKNOWN INDICATION
     Dosage: 20 MG, UNK
     Route: 042
     Dates: start: 20140731, end: 20140801

REACTIONS (3)
  - Hip fracture [Unknown]
  - Pneumonia [Fatal]
  - Fall [Unknown]

NARRATIVE: CASE EVENT DATE: 2016
